FAERS Safety Report 9291139 (Version 1)
Quarter: 2013Q2

REPORT INFORMATION
  Report Type: Spontaneous
  Country: US (occurrence: US)
  Receive Date: 20130515
  Receipt Date: 20130515
  Transmission Date: 20140414
  Serious: Yes (Hospitalization)
  Sender: FDA-Public Use
  Company Number: US-BAYER-2013-060230

PATIENT
  Age: 27 Year
  Sex: Female
  Weight: 105.22 kg

DRUGS (2)
  1. YASMIN [Suspect]
  2. GLUCOPHAGE [Concomitant]
     Dosage: 500 MG, TID

REACTIONS (1)
  - Deep vein thrombosis [None]
